FAERS Safety Report 9204474 (Version 2)
Quarter: 2013Q2

REPORT INFORMATION
  Report Type: Spontaneous
  Country: US (occurrence: US)
  Receive Date: 20130402
  Receipt Date: 20130418
  Transmission Date: 20140414
  Serious: Yes (Death)
  Sender: FDA-Public Use
  Company Number: US-ROCHE-1209194

PATIENT
  Sex: Male

DRUGS (1)
  1. XELODA [Suspect]
     Indication: PRODUCT USED FOR UNKNOWN INDICATION
     Dosage: LAST DOSE TAKEN ON 14/MAR/2013, 2 PILLS A DAY IN THE MORNING AND EVENING
     Route: 065
     Dates: start: 20130123

REACTIONS (2)
  - Pneumonia [Fatal]
  - Sepsis [Fatal]
